FAERS Safety Report 14046369 (Version 3)
Quarter: 2017Q4

REPORT INFORMATION
  Report Type: Report from Study
  Country: NL (occurrence: NL)
  Receive Date: 20171005
  Receipt Date: 20171012
  Transmission Date: 20180321
  Serious: Yes (Hospitalization)
  Sender: FDA-Public Use
  Company Number: NL-ROCHE-2000603

PATIENT
  Age: 85 Year
  Sex: Female
  Weight: 64.9 kg

DRUGS (18)
  1. AUGMENTIN [Concomitant]
     Active Substance: AMOXICILLIN\CLAVULANATE POTASSIUM
     Indication: URINARY TRACT INFECTION
     Route: 048
     Dates: start: 20170925
  2. CANDESARTAN. [Concomitant]
     Active Substance: CANDESARTAN
     Route: 048
     Dates: start: 20170928
  3. ACETYLSALICYLIC ACID [Concomitant]
     Active Substance: ASPIRIN
     Route: 048
     Dates: start: 20160119
  4. TIOTROPIUM [Concomitant]
     Active Substance: TIOTROPIUM
     Route: 055
     Dates: start: 20160119
  5. TEMAZEPAM. [Concomitant]
     Active Substance: TEMAZEPAM
     Dosage: PREVENTION OF INSOMNIA
     Route: 048
     Dates: start: 20160119
  6. ESOMEPRAZOL [Concomitant]
     Active Substance: ESOMEPRAZOLE
     Dosage: PREVENTION OF GASTRIC COMPLAINTS
     Route: 048
     Dates: start: 20160119
  7. ATEZOLIZUMAB. [Suspect]
     Active Substance: ATEZOLIZUMAB
     Indication: MALIGNANT URINARY TRACT NEOPLASM
     Dosage: DATE OF MOST RECENT DOSE PRIOR TO SERIOUS ADVERSE EVENTS WORSENING KIDNEY FUNCTION AND DEHYDRATION W
     Route: 042
     Dates: start: 20170905
  8. MOVICOLON [Concomitant]
     Active Substance: POLYETHYLENE GLYCOL 3350\POTASSIUM CHLORIDE\SODIUM BICARBONATE\SODIUM CHLORIDE
     Dosage: DOSE : 1 UNIT (SACHET 13.8 GM) ?PREVENTION OF CONSTIPATION
     Route: 048
     Dates: start: 201611
  9. SIMVASTATINE [Concomitant]
     Active Substance: SIMVASTATIN
     Route: 048
  10. PARACETAMOL [Concomitant]
     Active Substance: ACETAMINOPHEN
     Route: 048
     Dates: start: 20161116
  11. OXYNORM [Concomitant]
     Active Substance: OXYCODONE HYDROCHLORIDE
     Route: 048
     Dates: start: 201612
  12. ALLOPURINOL. [Concomitant]
     Active Substance: ALLOPURINOL
     Route: 048
     Dates: start: 201605
  13. METOCLOPRAMIDE. [Concomitant]
     Active Substance: METOCLOPRAMIDE
     Indication: NAUSEA
     Route: 050
     Dates: start: 20170925
  14. OXYCONTIN [Concomitant]
     Active Substance: OXYCODONE HYDROCHLORIDE
     Route: 048
     Dates: start: 201611
  15. METOPROLOL. [Concomitant]
     Active Substance: METOPROLOL
     Dosage: PREVENTION OF CARDIAC COMPLAINTS
     Route: 048
     Dates: start: 20160825
  16. FUROSEMIDE. [Concomitant]
     Active Substance: FUROSEMIDE
     Dosage: PREVENTION OF CARDIAC COMPLAINTS
     Route: 048
     Dates: start: 20160825, end: 20170925
  17. FUROSEMIDE. [Concomitant]
     Active Substance: FUROSEMIDE
     Dosage: RE-START
     Route: 048
     Dates: start: 20170928
  18. CANDESARTAN. [Concomitant]
     Active Substance: CANDESARTAN
     Dosage: PREVENTION OF CARDIAC COMPLAINTS
     Route: 048
     Dates: start: 20160119, end: 20170925

REACTIONS (1)
  - Dehydration [Recovered/Resolved]

NARRATIVE: CASE EVENT DATE: 20170926
